FAERS Safety Report 25012837 (Version 1)
Quarter: 2025Q1

REPORT INFORMATION
  Report Type: Spontaneous
  Country: US (occurrence: US)
  Receive Date: 20250226
  Receipt Date: 20250226
  Transmission Date: 20250408
  Serious: Yes (Other)
  Sender: MYLAN
  Company Number: US-MYLANLABS-2025M1015413

PATIENT
  Age: 56 Year
  Sex: Female

DRUGS (4)
  1. DIMETHYL FUMARATE [Suspect]
     Active Substance: DIMETHYL FUMARATE
     Indication: Relapsing-remitting multiple sclerosis
  2. INTERFERON BETA-1A [Suspect]
     Active Substance: INTERFERON BETA-1A
     Indication: Relapsing-remitting multiple sclerosis
  3. GLATIRAMER ACETATE [Concomitant]
     Active Substance: GLATIRAMER ACETATE
     Indication: Relapsing-remitting multiple sclerosis
  4. PSYLLIUM [Concomitant]
     Active Substance: PLANTAGO SEED
     Indication: Relapsing-remitting multiple sclerosis

REACTIONS (1)
  - Drug ineffective [Unknown]
